FAERS Safety Report 18294116 (Version 4)
Quarter: 2022Q3

REPORT INFORMATION
  Report Type: Report from Study
  Country: US (occurrence: US)
  Receive Date: 20200922
  Receipt Date: 20220819
  Transmission Date: 20221027
  Serious: Yes (Hospitalization)
  Sender: FDA-Public Use
  Company Number: US-SHIRE-US202030766

PATIENT
  Sex: Male

DRUGS (8)
  1. TEDUGLUTIDE [Suspect]
     Active Substance: TEDUGLUTIDE
     Indication: Short-bowel syndrome
     Dosage: 0.32 INTERNATIONAL UNIT, QD
     Route: 058
     Dates: start: 20160817
  2. TEDUGLUTIDE [Suspect]
     Active Substance: TEDUGLUTIDE
     Indication: Short-bowel syndrome
     Dosage: 0.32 INTERNATIONAL UNIT, QD
     Route: 058
     Dates: start: 20160817
  3. TEDUGLUTIDE [Suspect]
     Active Substance: TEDUGLUTIDE
     Indication: Short-bowel syndrome
     Dosage: 0.32 INTERNATIONAL UNIT, QD
     Route: 058
     Dates: start: 20160817
  4. TEDUGLUTIDE [Suspect]
     Active Substance: TEDUGLUTIDE
     Indication: Short-bowel syndrome
     Dosage: 0.32 INTERNATIONAL UNIT, QD
     Route: 058
     Dates: start: 20160817
  5. TEDUGLUTIDE [Suspect]
     Active Substance: TEDUGLUTIDE
     Dosage: 3.2 MICROGRAM, QD
     Route: 058
     Dates: start: 20161026
  6. TEDUGLUTIDE [Suspect]
     Active Substance: TEDUGLUTIDE
     Dosage: 3.2 MICROGRAM, QD
     Route: 058
     Dates: start: 20161026
  7. TEDUGLUTIDE [Suspect]
     Active Substance: TEDUGLUTIDE
     Dosage: 3.2 MICROGRAM, QD
     Route: 058
     Dates: start: 20161026
  8. TEDUGLUTIDE [Suspect]
     Active Substance: TEDUGLUTIDE
     Dosage: 3.2 MICROGRAM, QD
     Route: 058
     Dates: start: 20161026

REACTIONS (8)
  - Hospitalisation [Recovered/Resolved]
  - Flatulence [Recovered/Resolved]
  - Weight decreased [Unknown]
  - Gastrointestinal bacterial overgrowth [Recovering/Resolving]
  - Anal fissure [Unknown]
  - Abdominal discomfort [Recovering/Resolving]
  - Diarrhoea [Recovering/Resolving]
  - Scar pain [Recovering/Resolving]
